FAERS Safety Report 7674985-4 (Version None)
Quarter: 2011Q3

REPORT INFORMATION
  Report Type: 
  Country: None (occurrence: None)
  Receive Date: 20110810
  Receipt Date: 20110803
  Transmission Date: 20111222
  Serious: Yes (Hospitalization)
  Sender: FDA-Public Use
  Company Number: PHHO2011AT11749

PATIENT
  Sex: Male
  Weight: 72 kg

DRUGS (6)
  1. CERTICAN [Suspect]
     Indication: RENAL TRANSPLANT
     Dosage: UNK
     Route: 048
     Dates: start: 20110609
  2. PREDNISOLONE [Suspect]
  3. SIMULECT [Concomitant]
     Dosage: 20 MG, QD
     Dates: start: 20110308, end: 20110308
  4. MYFORTIC [Suspect]
     Indication: RENAL TRANSPLANT
     Dosage: UNK
     Route: 048
     Dates: start: 20110308
  5. SIMULECT [Concomitant]
     Dosage: 20 MG, PRN
     Dates: start: 20110313
  6. PROGRAF [Concomitant]
     Dosage: BID, PRN
     Dates: start: 20110308

REACTIONS (1)
  - KIDNEY TRANSPLANT REJECTION [None]
